FAERS Safety Report 14472841 (Version 3)
Quarter: 2019Q1

REPORT INFORMATION
  Report Type: Spontaneous
  Country: US (occurrence: US)
  Receive Date: 20180201
  Receipt Date: 20190226
  Transmission Date: 20190417
  Serious: Yes (Other)
  Sender: FDA-Public Use
  Company Number: PHEH2018US004076

PATIENT
  Sex: Female

DRUGS (1)
  1. TASIGNA [Suspect]
     Active Substance: NILOTINIB
     Indication: CHRONIC MYELOID LEUKAEMIA
     Dosage: 200 MG, BID
     Route: 048

REACTIONS (20)
  - Hiatus hernia [Unknown]
  - Eye pain [Unknown]
  - Liver disorder [Unknown]
  - Intervertebral disc degeneration [Unknown]
  - Arthritis [Unknown]
  - Alopecia [Unknown]
  - Asthenia [Unknown]
  - Hyperlipidaemia [Unknown]
  - Vision blurred [Unknown]
  - Malaise [Unknown]
  - Hypertension [Unknown]
  - Fatigue [Unknown]
  - Hot flush [Unknown]
  - Embolic stroke [Unknown]
  - Acute kidney injury [Unknown]
  - Respiratory disorder [Unknown]
  - Headache [Unknown]
  - Hypokalaemia [Unknown]
  - Peripheral vascular disorder [Unknown]
  - Dysarthria [Unknown]
